FAERS Safety Report 8064880-3 (Version None)
Quarter: 2012Q1

REPORT INFORMATION
  Report Type: 
  Country: None (occurrence: None)
  Receive Date: 20120124
  Receipt Date: 20120112
  Transmission Date: 20120608
  Serious: No
  Sender: FDA-Public Use
  Company Number: US-BIOGENIDEC-2012BI001556

PATIENT
  Sex: Female

DRUGS (2)
  1. TYSABRI [Suspect]
     Indication: MULTIPLE SCLEROSIS
     Route: 042
     Dates: start: 20070201, end: 20070502
  2. TYSABRI [Suspect]
     Route: 042
     Dates: start: 20110224

REACTIONS (8)
  - HEAD INJURY [None]
  - DIZZINESS [None]
  - FACIAL PAIN [None]
  - FALL [None]
  - BALANCE DISORDER [None]
  - MEMORY IMPAIRMENT [None]
  - MULTIPLE SCLEROSIS [None]
  - HEADACHE [None]
